FAERS Safety Report 8901436 (Version 1)
Quarter: 2012Q4

REPORT INFORMATION
  Report Type: Report from Study
  Country: CA (occurrence: CA)
  Receive Date: 20121109
  Receipt Date: 20121109
  Transmission Date: 20130627
  Serious: Yes (Other)
  Sender: FDA-Public Use
  Company Number: CA-JNJFOC-20121100441

PATIENT
  Age: 51 Year
  Sex: Male
  Weight: 106 kg

DRUGS (3)
  1. REMICADE [Suspect]
     Indication: COLITIS ULCERATIVE
     Dosage: 5th infusion
     Route: 042
     Dates: start: 20121030
  2. REMICADE [Suspect]
     Indication: COLITIS ULCERATIVE
     Dosage: dosing frequency: once every 6 to 8 weeks
     Route: 042
     Dates: start: 201207
  3. BENADRYL [Concomitant]
     Indication: PREMEDICATION
     Route: 042

REACTIONS (7)
  - Infusion related reaction [Unknown]
  - Respiratory depression [Recovering/Resolving]
  - Dyspnoea [Unknown]
  - Flushing [Unknown]
  - Tremor [Recovered/Resolved]
  - Chills [Unknown]
  - Anxiety [Recovering/Resolving]
